FAERS Safety Report 7501129-1 (Version None)
Quarter: 2011Q2

REPORT INFORMATION
  Report Type: 
  Country: None (occurrence: None)
  Receive Date: 20110524
  Receipt Date: 20110511
  Transmission Date: 20111010
  Serious: Yes (Hospitalization)
  Sender: FDA-Public Use
  Company Number: JP-UCBSA-017439

PATIENT
  Sex: Female
  Weight: 66 kg

DRUGS (18)
  1. CERTOLIZUMAB PEGOL [Suspect]
     Route: 058
     Dates: start: 20110325, end: 20110101
  2. CERTOLIZUMAB PEGOL [Suspect]
     Route: 058
     Dates: start: 20110420
  3. CERTOLIZUMAB PEGOL [Suspect]
     Indication: RHEUMATOID ARTHRITIS
     Dosage: C87041
     Route: 058
     Dates: start: 20090607
  4. FOLIC ACID [Concomitant]
     Dates: start: 20080401, end: 20100803
  5. VALPROATE SODIUM [Concomitant]
     Dates: start: 20100926, end: 20110314
  6. FOLIC ACID [Concomitant]
     Dates: start: 20101223
  7. METHOTREXATE [Concomitant]
     Dates: start: 20090517, end: 20100808
  8. PREDNISOLONE [Concomitant]
     Dates: start: 20101016
  9. FAMOTIDINE [Concomitant]
     Dates: start: 20100925
  10. CERTOLIZUMAB PEGOL [Suspect]
     Route: 058
     Dates: start: 20091228, end: 20100804
  11. METHOTREXATE [Concomitant]
     Dates: start: 20101228
  12. ZOLPIDEM TARTRATE [Concomitant]
     Dosage: 5 MG AS NECESSARY
     Dates: end: 20100809
  13. CERTOLIZUMAB PEGOL [Suspect]
     Route: 058
     Dates: start: 20101027, end: 20110216
  14. PREDNISOLONE [Concomitant]
     Dates: start: 20090513, end: 20100809
  15. INDOMETHACIN FARNESIL [Concomitant]
     Dates: start: 20080401, end: 20100809
  16. FAMOTIDINE [Concomitant]
     Dates: end: 20100809
  17. TEPRENONE [Concomitant]
     Dates: end: 20100809
  18. OLMESARTAN MEDOXOMIL [Concomitant]
     Dates: start: 20101110

REACTIONS (2)
  - SUBARACHNOID HAEMORRHAGE [None]
  - CONVULSION [None]
